FAERS Safety Report 12532208 (Version 1)
Quarter: 2016Q3

REPORT INFORMATION
  Report Type: Spontaneous
  Country: GB (occurrence: GB)
  Receive Date: 20160706
  Receipt Date: 20160706
  Transmission Date: 20161109
  Serious: Yes (Other)
  Sender: FDA-Public Use
  Company Number: GB-MYLANLABS-2016M1026783

PATIENT

DRUGS (2)
  1. DOXYCYCLINE. [Suspect]
     Active Substance: DOXYCYCLINE
     Indication: BACTERIAL PROSTATITIS
     Dosage: 100MG PER DAY, 200MG TO BE TAKEN ON THE FIRST DAY.
     Route: 048
     Dates: start: 20160527, end: 20160529
  2. EVIPLERA [Concomitant]
     Active Substance: EMTRICITABINE\RILPIVIRINE\TENOFOVIR DISOPROXIL FUMARATE
     Dosage: UNK

REACTIONS (7)
  - Hypoacusis [Unknown]
  - Ear discomfort [Unknown]
  - Ototoxicity [Unknown]
  - Ear pain [Unknown]
  - Hyperacusis [Not Recovered/Not Resolved]
  - Balance disorder [Recovering/Resolving]
  - Coordination abnormal [Unknown]

NARRATIVE: CASE EVENT DATE: 20160528
